FAERS Safety Report 16539973 (Version 1)
Quarter: 2019Q3

REPORT INFORMATION
  Report Type: Spontaneous
  Country: US (occurrence: US)
  Receive Date: 20190706
  Receipt Date: 20190706
  Transmission Date: 20191004
  Serious: No
  Sender: FDA-Public Use
  Company Number: None

PATIENT
  Age: 24 Year
  Sex: Female
  Weight: 108 kg

DRUGS (2)
  1. EXCEDRIN [Concomitant]
     Active Substance: ACETAMINOPHEN\ASPIRIN\CAFFEINE
  2. MUCUS RELIEF [Suspect]
     Active Substance: GUAIFENESIN
     Indication: PRODUCTIVE COUGH
     Dosage: ?          QUANTITY:30 TABLET(S);?
     Route: 048
     Dates: start: 20190706, end: 20190706

REACTIONS (5)
  - Diarrhoea [None]
  - Pyrexia [None]
  - Vomiting [None]
  - Disorientation [None]
  - Dyspnoea [None]

NARRATIVE: CASE EVENT DATE: 20190706
